FAERS Safety Report 13736573 (Version 1)
Quarter: 2017Q3

REPORT INFORMATION
  Report Type: Spontaneous
  Country: US (occurrence: US)
  Receive Date: 20170708
  Receipt Date: 20170708
  Transmission Date: 20171127
  Serious: Yes (Life-Threatening, Hospitalization, Other)
  Sender: FDA-Public Use
  Company Number: None

PATIENT
  Age: 77 Year
  Sex: Male
  Weight: 94.89 kg

DRUGS (26)
  1. ENTRESTO [Suspect]
     Active Substance: SACUBITRIL\VALSARTAN
     Indication: CARDIAC FAILURE
     Route: 048
     Dates: start: 20160725, end: 20170222
  2. ENTRESTO [Suspect]
     Active Substance: SACUBITRIL\VALSARTAN
     Indication: FLUID RETENTION
     Route: 048
     Dates: start: 20160725, end: 20170222
  3. ATORVASTATIN [Concomitant]
     Active Substance: ATORVASTATIN
  4. DIGOX [Concomitant]
     Active Substance: DIGOXIN
  5. PROTONIX [Concomitant]
     Active Substance: PANTOPRAZOLE SODIUM
  6. FLEET ENEMA (SODIUM PHOSPHATES) [Concomitant]
  7. ASPIRIN. [Concomitant]
     Active Substance: ASPIRIN
  8. AMBIEN [Concomitant]
     Active Substance: ZOLPIDEM TARTRATE
  9. BLOOD GLUCOSE TEST STRIPS [Concomitant]
  10. DULCOLAX (BISACODYL) [Concomitant]
     Active Substance: BISACODYL
  11. BUMETANIDE. [Concomitant]
     Active Substance: BUMETANIDE
  12. FERROUS SULFATE. [Concomitant]
     Active Substance: FERROUS SULFATE
  13. HYDRALAZINE HCL [Concomitant]
     Active Substance: HYDRALAZINE HYDROCHLORIDE
  14. POTASSIUM CHLORIDE ER [Concomitant]
     Active Substance: POTASSIUM CHLORIDE
  15. FERROUSUL (FERROUS SULFATE) [Concomitant]
  16. UNIFINE PENTIPS [Concomitant]
  17. INSULIN ASPART NOVALOG [Concomitant]
  18. MELATONIN [Concomitant]
     Active Substance: MELATONIN
  19. GLUCOTROL [Concomitant]
     Active Substance: GLIPIZIDE
  20. MULTI-DAY TABLET [Concomitant]
  21. NOVOLOG [Concomitant]
     Active Substance: INSULIN ASPART
  22. PLAVIX [Concomitant]
     Active Substance: CLOPIDOGREL BISULFATE
  23. ISOSORBIDE MONONITRATE. [Concomitant]
     Active Substance: ISOSORBIDE MONONITRATE
  24. LANTUS SOLOSTAR [Concomitant]
     Active Substance: INSULIN GLARGINE
  25. NITROGLYCERIN. [Concomitant]
     Active Substance: NITROGLYCERIN
  26. B COMPLEX W/VIT. C [Concomitant]

REACTIONS (2)
  - Peripheral swelling [None]
  - Weight increased [None]

NARRATIVE: CASE EVENT DATE: 20170202
